FAERS Safety Report 6543420-1 (Version None)
Quarter: 2010Q1

REPORT INFORMATION
  Report Type: 
  Country: None (occurrence: None)
  Receive Date: 20100120
  Receipt Date: 20090911
  Transmission Date: 20100710
  Serious: No
  Sender: FDA-Public Use
  Company Number: US-KINGPHARMUSA00001-K200901137

PATIENT
  Age: 31 Year
  Sex: Female
  Weight: 47.619 kg

DRUGS (1)
  1. INTAL [Suspect]
     Indication: ASTHMA
     Dosage: 2 PUFFS, QD PRN
     Dates: end: 20090901

REACTIONS (2)
  - DYSPNOEA [None]
  - UNDERDOSE [None]
